FAERS Safety Report 5729202-9 (Version None)
Quarter: 2008Q2

REPORT INFORMATION
  Report Type: 
  Country: None (occurrence: None)
  Receive Date: 20080506
  Receipt Date: 20080424
  Transmission Date: 20081010
  Serious: Yes (Hospitalization, Other)
  Sender: FDA-Public Use
  Company Number: US-PFIZER INC-2008037367

PATIENT
  Sex: Female
  Weight: 60.909 kg

DRUGS (4)
  1. CHANTIX [Suspect]
     Indication: SMOKING CESSATION THERAPY
     Route: 048
  2. LIPITOR [Concomitant]
  3. TOPROL-XL [Concomitant]
  4. ACETYLSALICYLIC ACID SRT [Concomitant]

REACTIONS (3)
  - MEDICATION ERROR [None]
  - MYOCARDIAL INFARCTION [None]
  - THROMBOSIS [None]
